FAERS Safety Report 5866696-2 (Version None)
Quarter: 2008Q3

REPORT INFORMATION
  Report Type: 
  Country: None (occurrence: None)
  Receive Date: 20080902
  Receipt Date: 20080825
  Transmission Date: 20090109
  Serious: Yes (Other)
  Sender: FDA-Public Use
  Company Number: US-BAYER-200827764NA

PATIENT
  Age: 27 Year
  Sex: Female

DRUGS (2)
  1. AVELOX [Suspect]
     Indication: BRONCHITIS
     Dosage: TOTAL DAILY DOSE: 400 MG  UNIT DOSE: 400 MG
     Dates: start: 20080704, end: 20080708
  2. EFFEXOR XR [Concomitant]
     Indication: DEPRESSION
     Dates: start: 20080201

REACTIONS (2)
  - DEPRESSION [None]
  - SUICIDAL IDEATION [None]
